FAERS Safety Report 9805596 (Version 1)
Quarter: 2014Q1

REPORT INFORMATION
  Report Type: Spontaneous
  Country: US (occurrence: US)
  Receive Date: 20140109
  Receipt Date: 20140109
  Transmission Date: 20141002
  Serious: Yes (Death, Hospitalization, Other)
  Sender: FDA-Public Use
  Company Number: US-UCBSA-107541

PATIENT
  Age: 41 Year
  Sex: Male

DRUGS (3)
  1. ALPRAZOLAM [Suspect]
     Dosage: ROUTE: INGESTION
     Route: 048
  2. CYCLOBENZAPRINE [Suspect]
     Dosage: ROUTE: INGESTION
  3. OXYCODONE [Suspect]
     Dosage: ROUTE: INGESTION

REACTIONS (2)
  - Cardio-respiratory arrest [Fatal]
  - Completed suicide [Fatal]
